FAERS Safety Report 23629709 (Version 3)
Quarter: 2025Q3

REPORT INFORMATION
  Report Type: Report from Study
  Country: CA (occurrence: CA)
  Receive Date: 20240314
  Receipt Date: 20250805
  Transmission Date: 20251020
  Serious: Yes (Hospitalization)
  Sender: TAKEDA
  Company Number: CA-TAKEDA-CA202020842

PATIENT
  Age: 33 Year
  Sex: Female

DRUGS (10)
  1. ICATIBANT [Suspect]
     Active Substance: ICATIBANT ACETATE
     Indication: Hereditary angioedema with normal C1 esterase inhibitor
  2. ICATIBANT [Suspect]
     Active Substance: ICATIBANT ACETATE
  3. ICATIBANT [Suspect]
     Active Substance: ICATIBANT ACETATE
  4. ICATIBANT [Suspect]
     Active Substance: ICATIBANT ACETATE
  5. ICATIBANT [Suspect]
     Active Substance: ICATIBANT ACETATE
  6. ICATIBANT [Suspect]
     Active Substance: ICATIBANT ACETATE
  7. TAKHZYRO [Suspect]
     Active Substance: LANADELUMAB-FLYO
     Indication: Hereditary angioedema with normal C1 esterase inhibitor
     Dosage: 300 MG/2 ML
     Dates: start: 20240606
  8. TAKHZYRO [Suspect]
     Active Substance: LANADELUMAB-FLYO
  9. TAKHZYRO [Suspect]
     Active Substance: LANADELUMAB-FLYO
  10. BERINERT [Concomitant]
     Active Substance: HUMAN C1-ESTERASE INHIBITOR
     Indication: Hereditary angioedema

REACTIONS (7)
  - Cholelithiasis [Unknown]
  - Illness [Not Recovered/Not Resolved]
  - Insurance issue [Unknown]
  - Product use issue [Unknown]
  - Expired product administered [Not Recovered/Not Resolved]
  - Abdominal pain [Unknown]
  - Pyrexia [Not Recovered/Not Resolved]

NARRATIVE: CASE EVENT DATE: 20200501
